FAERS Safety Report 6971034-8 (Version None)
Quarter: 2010Q3

REPORT INFORMATION
  Report Type: 
  Country: None (occurrence: None)
  Receive Date: 20100903
  Receipt Date: 20100825
  Transmission Date: 20110219
  Serious: Yes (Life-Threatening)
  Sender: FDA-Public Use
  Company Number: LEO-2010-00800

PATIENT
  Age: 68 Year
  Sex: Male
  Weight: 92.07 kg

DRUGS (4)
  1. TACLONEX [Suspect]
     Indication: PRODUCT USED FOR UNKNOWN INDICATION
     Dosage: TOPICAL
     Route: 061
     Dates: start: 20100701
  2. DILANTIN (PHENYTOIN) (100 MILLIGRAM) [Concomitant]
  3. PERINDOPRIL ERBUMINE [Concomitant]
  4. TECTA (PANTOPRAZOLE SODIUM) [Concomitant]

REACTIONS (1)
  - ANAPHYLACTIC REACTION [None]
